FAERS Safety Report 6587772-5 (Version None)
Quarter: 2010Q1

REPORT INFORMATION
  Report Type: 
  Country: None (occurrence: None)
  Receive Date: 20100218
  Receipt Date: 20100210
  Transmission Date: 20100710
  Serious: Yes (Congenital Anomaly)
  Sender: FDA-Public Use
  Company Number: GB-ASTRAZENECA-2010SE06026

PATIENT

DRUGS (2)
  1. SEROQUEL XR [Suspect]
     Route: 064
  2. CITALOPRAM HYDROBROMIDE [Concomitant]
     Route: 064

REACTIONS (1)
  - ULTRASOUND SCAN ABNORMAL [None]
